FAERS Safety Report 7683506-1 (Version None)
Quarter: 2011Q3

REPORT INFORMATION
  Report Type: 
  Country: None (occurrence: None)
  Receive Date: 20110815
  Receipt Date: 20110715
  Transmission Date: 20111222
  Serious: No
  Sender: FDA-Public Use
  Company Number: US-MYLANLABS-2011S1009204

PATIENT
  Age: 53 Year
  Sex: Female

DRUGS (1)
  1. NICARDIPINE HCL [Suspect]
     Indication: BLOOD PRESSURE INCREASED
     Route: 048
     Dates: start: 20110101

REACTIONS (6)
  - CONFUSIONAL STATE [None]
  - FLANK PAIN [None]
  - TACHYCARDIA [None]
  - YELLOW SKIN [None]
  - PRURITUS [None]
  - DIZZINESS [None]
